FAERS Safety Report 4353512-3 (Version None)
Quarter: 2004Q2

REPORT INFORMATION
  Report Type: 
  Country: None (occurrence: None)
  Receive Date: 20040505
  Receipt Date: 20030729
  Transmission Date: 20050107
  Serious: Yes (Disabling)
  Sender: FDA-Public Use
  Company Number: SE-ROCHE-343692

PATIENT
  Age: 38 Year
  Sex: Female

DRUGS (2)
  1. ROACCUTAN [Suspect]
     Route: 048
     Dates: start: 20021011, end: 20030321
  2. LEVONORGESTREL [Suspect]
     Indication: CONTRACEPTION
     Dosage: REPORTED AS LEVONA.
     Route: 065
     Dates: start: 20021015

REACTIONS (1)
  - DEEP VEIN THROMBOSIS [None]
